FAERS Safety Report 21082501 (Version 2)
Quarter: 2022Q3

REPORT INFORMATION
  Report Type: Spontaneous
  Country: BR (occurrence: BR)
  Receive Date: 20220714
  Receipt Date: 20220804
  Transmission Date: 20221027
  Serious: Yes (Life-Threatening, Disabling, Other)
  Sender: FDA-Public Use
  Company Number: BR-TAKEDA-2022TUS046422

PATIENT
  Sex: Female
  Weight: 63 kg

DRUGS (1)
  1. PANTOZOL [Suspect]
     Active Substance: PANTOPRAZOLE SODIUM
     Dosage: 40 MILLIGRAM, QD
     Route: 065

REACTIONS (24)
  - Coma [Unknown]
  - Thrombosis [Unknown]
  - Anosmia [Unknown]
  - Lymphoma [Unknown]
  - Cholesteatoma [Unknown]
  - Neoplasm malignant [Unknown]
  - Neoplasm [Unknown]
  - Gastrooesophageal reflux disease [Unknown]
  - Gastrointestinal perforation [Not Recovered/Not Resolved]
  - Haematemesis [Not Recovered/Not Resolved]
  - COVID-19 [Not Recovered/Not Resolved]
  - Water pollution [Unknown]
  - Gastric disorder [Unknown]
  - Cardiac disorder [Unknown]
  - Limb injury [Unknown]
  - Phlebitis [Unknown]
  - Walking aid user [Unknown]
  - Cough [Unknown]
  - Decreased appetite [Unknown]
  - Dyspepsia [Unknown]
  - Product availability issue [Unknown]
  - Memory impairment [Unknown]
  - Drug hypersensitivity [Unknown]
  - Pruritus [Unknown]

NARRATIVE: CASE EVENT DATE: 20220729
